FAERS Safety Report 22646068 (Version 1)
Quarter: 2023Q2

REPORT INFORMATION
  Report Type: Spontaneous
  Country: CL (occurrence: CL)
  Receive Date: 20230627
  Receipt Date: 20230627
  Transmission Date: 20230722
  Serious: Yes (Hospitalization, Other)
  Sender: FDA-Public Use
  Company Number: CL-009507513-2306CHL004680

PATIENT
  Age: 35 Year
  Sex: Male

DRUGS (2)
  1. KEYTRUDA [Suspect]
     Active Substance: PEMBROLIZUMAB
     Indication: Melanoma recurrent
     Dosage: 200MG EVERY 21 DAYS
     Dates: start: 202304, end: 202304
  2. KEYTRUDA [Suspect]
     Active Substance: PEMBROLIZUMAB
     Dosage: 200MG EVERY 21 DAYS
     Dates: start: 20230621, end: 20230621

REACTIONS (4)
  - Haemodynamic instability [Unknown]
  - Ill-defined disorder [Unknown]
  - Type 1 diabetes mellitus [Unknown]
  - Diabetic ketoacidosis [Unknown]

NARRATIVE: CASE EVENT DATE: 20230420
